FAERS Safety Report 4471325-9 (Version None)
Quarter: 2004Q4

REPORT INFORMATION
  Report Type: 
  Country: None (occurrence: None)
  Receive Date: 20041007
  Receipt Date: 20040920
  Transmission Date: 20050328
  Serious: Yes (Hospitalization, Other)
  Sender: FDA-Public Use
  Company Number: BR-2004-032768

PATIENT
  Age: 32 Year
  Sex: Female
  Weight: 57 kg

DRUGS (1)
  1. YASMIN [Suspect]
     Indication: ORAL CONTRACEPTION
     Dosage: 1 TAB(S), ORAL
     Route: 048
     Dates: start: 20040501, end: 20040910

REACTIONS (11)
  - ABDOMINAL DISTENSION [None]
  - ARTERIAL THROMBOSIS [None]
  - DIARRHOEA [None]
  - HAEMATOCHEZIA [None]
  - ILEUS PARALYTIC [None]
  - IMPAIRED GASTRIC EMPTYING [None]
  - LIVER DISORDER [None]
  - MALAISE [None]
  - NAUSEA [None]
  - SPLEEN DISORDER [None]
  - VOMITING [None]
